FAERS Safety Report 8429534-X (Version None)
Quarter: 2012Q2

REPORT INFORMATION
  Report Type: 
  Country: None (occurrence: None)
  Receive Date: 20120612
  Receipt Date: 20120605
  Transmission Date: 20120825
  Serious: Yes (Hospitalization)
  Sender: FDA-Public Use
  Company Number: FR-PFIZER INC-2012135490

PATIENT
  Age: 25 Year
  Sex: Female

DRUGS (5)
  1. TERCIAN [Suspect]
     Indication: MAJOR DEPRESSION
     Dosage: UNK
  2. ESCITALOPRAM [Suspect]
     Indication: MAJOR DEPRESSION
     Dosage: UNK
  3. VALIUM [Suspect]
     Indication: MAJOR DEPRESSION
     Dosage: 25 MG, 3X/DAY
  4. EFFEXOR XR [Suspect]
     Indication: MAJOR DEPRESSION
  5. LAUDANUM [Suspect]
     Indication: MAJOR DEPRESSION
     Dosage: 10 MG, 2 OR 3XDAY

REACTIONS (1)
  - DRUG RESISTANCE [None]
